FAERS Safety Report 18281700 (Version 1)
Quarter: 2020Q3

REPORT INFORMATION
  Report Type: Spontaneous
  Country: ES (occurrence: ES)
  Receive Date: 20200918
  Receipt Date: 20200918
  Transmission Date: 20201103
  Serious: Yes (Other)
  Sender: FDA-Public Use
  Company Number: ES-TEVA-2020-ES-1829595

PATIENT
  Age: 72 Year
  Sex: Female

DRUGS (6)
  1. PREDNISONE. [Suspect]
     Active Substance: PREDNISONE
     Dosage: 10 MILLIGRAM DAILY;
     Route: 048
  2. ACITRETIN. [Suspect]
     Active Substance: ACITRETIN
     Indication: POROKERATOSIS
     Route: 065
  3. IMIQUIMOD. [Suspect]
     Active Substance: IMIQUIMOD
     Indication: POROKERATOSIS
     Route: 065
  4. 5?FLUOROURACIL [Suspect]
     Active Substance: FLUOROURACIL
     Indication: POROKERATOSIS
     Route: 061
  5. PREDNISONE. [Suspect]
     Active Substance: PREDNISONE
     Indication: POROKERATOSIS
     Dosage: 10 MILLIGRAM DAILY;
     Route: 061
  6. DICLOFENAC [Suspect]
     Active Substance: DICLOFENAC
     Indication: POROKERATOSIS
     Route: 065

REACTIONS (2)
  - Skin disorder [Unknown]
  - Drug ineffective [Unknown]
